FAERS Safety Report 5624169-6 (Version None)
Quarter: 2008Q1

REPORT INFORMATION
  Report Type: 
  Country: None (occurrence: None)
  Receive Date: 20080213
  Receipt Date: 20080204
  Transmission Date: 20080703
  Serious: Yes (Hospitalization)
  Sender: FDA-Public Use
  Company Number: PHHY2008JP01415

PATIENT

DRUGS (2)
  1. DIOVAN [Suspect]
     Indication: HYPERTENSION
     Dosage: 80MG DAILY
     Route: 048
     Dates: start: 20061125, end: 20070519
  2. CALBLOCK [Concomitant]
     Dates: start: 20040218

REACTIONS (1)
  - DEPRESSION [None]
